FAERS Safety Report 20910221 (Version 1)
Quarter: 2022Q2

REPORT INFORMATION
  Report Type: Spontaneous
  Country: HK (occurrence: HK)
  Receive Date: 20220603
  Receipt Date: 20220603
  Transmission Date: 20220721
  Serious: Yes (Other)
  Sender: FDA-Public Use
  Company Number: HK-LUPIN PHARMACEUTICALS INC.-2022-08039

PATIENT
  Age: 45 Year
  Sex: Female

DRUGS (5)
  1. MEFENAMIC ACID [Suspect]
     Active Substance: MEFENAMIC ACID
     Indication: Rheumatoid arthritis
     Dosage: UNK
     Route: 065
  2. CLOXACILLIN [Suspect]
     Active Substance: CLOXACILLIN
     Indication: Rheumatoid arthritis
     Dosage: UNK
     Route: 065
  3. METHOTREXATE [Concomitant]
     Active Substance: METHOTREXATE
     Indication: Rheumatoid arthritis
     Dosage: 15 MG WEEKLY
     Route: 065
  4. SULFASALAZINE [Concomitant]
     Active Substance: SULFASALAZINE
     Indication: Rheumatoid arthritis
     Dosage: 1 GRAM, BID
     Route: 065
  5. AMOXICILLIN [Concomitant]
     Active Substance: AMOXICILLIN
     Indication: Product used for unknown indication
     Dosage: UNK
     Route: 065

REACTIONS (2)
  - Angioedema [Unknown]
  - Drug hypersensitivity [Unknown]
